FAERS Safety Report 6504841-6 (Version None)
Quarter: 2009Q4

REPORT INFORMATION
  Report Type: 
  Country: None (occurrence: None)
  Receive Date: 20091218
  Receipt Date: 20091214
  Transmission Date: 20100525
  Serious: Yes (Death)
  Sender: FDA-Public Use
  Company Number: CA-ABBOTT-09P-028-0614138-00

PATIENT
  Sex: Male

DRUGS (22)
  1. HUMIRA [Suspect]
     Indication: PSORIASIS
     Route: 058
     Dates: start: 20091001
  2. LIPIDIL EZ [Concomitant]
     Indication: HYPERCHOLESTEROLAEMIA
     Route: 048
     Dates: start: 20060101
  3. IMDUR [Concomitant]
     Indication: ANGINA PECTORIS
     Route: 048
     Dates: start: 19990101
  4. METOPROLOL SUCCINATE [Concomitant]
     Indication: HYPERTENSION
     Route: 048
     Dates: start: 20040101
  5. NOVO-QUININE [Concomitant]
     Indication: MUSCLE SPASMS
     Route: 048
     Dates: start: 20060101
  6. SYNTHROID [Concomitant]
     Indication: HYPOTHYROIDISM
     Route: 048
     Dates: start: 20040101
  7. EURO-CAL [Concomitant]
     Indication: NUTRITIONAL SUPPORT
     Route: 048
     Dates: start: 20080101
  8. LIPITOR [Concomitant]
     Indication: HYPERCHOLESTEROLAEMIA
     Route: 048
     Dates: start: 19990101, end: 20091122
  9. LIPITOR [Concomitant]
     Route: 048
     Dates: start: 20091123
  10. NEXIUM [Concomitant]
     Indication: BARRETT'S OESOPHAGUS
     Route: 048
     Dates: start: 20060101
  11. DIOVAN HCT [Concomitant]
     Indication: HYPERTENSION
     Dosage: 160/12.5 MG
     Route: 048
     Dates: start: 20040101
  12. RATIO-TRAZODONE [Concomitant]
     Indication: INSOMNIA
     Route: 048
     Dates: start: 20070101
  13. ASPIRIN [Concomitant]
     Indication: CARDIOVASCULAR EVENT PROPHYLAXIS
     Route: 048
     Dates: start: 19920101
  14. APO-NITRAZEPAM [Concomitant]
     Indication: INSOMNIA
     Route: 048
     Dates: start: 20070101
  15. RATIO-EMTEC [Concomitant]
     Indication: OSTEOARTHRITIS
     Route: 048
     Dates: start: 20000101
  16. RATIO-EMTEC [Concomitant]
     Indication: PSORIATIC ARTHROPATHY
  17. GEN-NITRO [Concomitant]
     Indication: ANGINA PECTORIS
     Route: 060
     Dates: start: 19920101
  18. CLARITIN [Concomitant]
     Indication: SEASONAL ALLERGY
     Route: 055
     Dates: start: 20090801
  19. CLARITIN [Concomitant]
     Route: 048
     Dates: start: 20090801
  20. FUCIDINE CAP [Concomitant]
     Indication: PSORIASIS
     Dosage: 2 %
     Route: 061
     Dates: start: 20060101
  21. BETAHISTINE [Concomitant]
     Indication: DIZZINESS
     Route: 048
     Dates: start: 20090930
  22. DESOCORT [Concomitant]
     Indication: PSORIASIS
     Dates: start: 20090904

REACTIONS (1)
  - MYOCARDIAL INFARCTION [None]
